FAERS Safety Report 9379566 (Version 2)
Quarter: 2013Q3

REPORT INFORMATION
  Report Type: Spontaneous
  Country: DE (occurrence: DE)
  Receive Date: 20130702
  Receipt Date: 20130712
  Transmission Date: 20140515
  Serious: Yes (Other)
  Sender: FDA-Public Use
  Company Number: DE-TEVA-415100GER

PATIENT
  Age: 6 Decade
  Sex: Male
  Weight: 90 kg

DRUGS (1)
  1. DIAZEPAM 5 MG TABLETTEN [Suspect]
     Dosage: 50 MILLIGRAM DAILY;
     Route: 048

REACTIONS (4)
  - Loss of consciousness [Recovered/Resolved]
  - Alcohol interaction [Recovered/Resolved]
  - Overdose [Recovered/Resolved]
  - Victim of crime [Recovered/Resolved]
